FAERS Safety Report 23762018 (Version 1)
Quarter: 2024Q2

REPORT INFORMATION
  Report Type: Spontaneous
  Country: PL (occurrence: PL)
  Receive Date: 20240419
  Receipt Date: 20240419
  Transmission Date: 20240716
  Serious: Yes (Hospitalization, Other)
  Sender: FDA-Public Use
  Company Number: PL-TEVA-VS-3182610

PATIENT
  Age: 75 Year
  Sex: Female

DRUGS (1)
  1. METHOTREXATE [Suspect]
     Active Substance: METHOTREXATE
     Indication: Rheumatoid arthritis
     Route: 058

REACTIONS (4)
  - Erysipelas [Unknown]
  - Pain in extremity [Recovering/Resolving]
  - Erythema [Recovering/Resolving]
  - Oedema [Recovering/Resolving]
